FAERS Safety Report 4382739-X (Version None)
Quarter: 2004Q2

REPORT INFORMATION
  Report Type: 
  Country: None (occurrence: None)
  Receive Date: 20040617
  Receipt Date: 20040603
  Transmission Date: 20050107
  Serious: Yes (Life-Threatening, Hospitalization, Other)
  Sender: FDA-Public Use
  Company Number: 237379

PATIENT
  Age: 56 Year
  Sex: Female
  Weight: 83.5 kg

DRUGS (1)
  1. KLIOVANCE(NORETHISTERONE ACETATE, ESTRADIOL HEMIHYDRATE) FILM-COATED T [Suspect]
     Indication: MENOPAUSAL DISORDER
     Dosage: PER ORAL
     Route: 048
     Dates: start: 20020819, end: 20040423

REACTIONS (1)
  - PULMONARY EMBOLISM [None]
